FAERS Safety Report 5795378-0 (Version None)
Quarter: 2008Q2

REPORT INFORMATION
  Report Type: 
  Country: None (occurrence: None)
  Receive Date: 20080630
  Receipt Date: 20080620
  Transmission Date: 20081010
  Serious: Yes (Other)
  Sender: FDA-Public Use
  Company Number: US-PFIZER INC-2008051911

PATIENT
  Sex: Female
  Weight: 59.09 kg

DRUGS (3)
  1. CELEBREX [Suspect]
     Indication: JOINT INJURY
  2. ZYRTEC [Interacting]
     Indication: HYPERSENSITIVITY
  3. ASTELIN [Interacting]
     Indication: HYPERSENSITIVITY

REACTIONS (6)
  - ANAPHYLACTIC REACTION [None]
  - DRUG INTERACTION [None]
  - DYSPNOEA [None]
  - ERYTHEMA [None]
  - PRURITUS [None]
  - URTICARIA [None]
